FAERS Safety Report 25388002 (Version 1)
Quarter: 2025Q2

REPORT INFORMATION
  Report Type: Spontaneous
  Country: US (occurrence: US)
  Receive Date: 20250603
  Receipt Date: 20250603
  Transmission Date: 20250716
  Serious: Yes (Other)
  Sender: AUROBINDO
  Company Number: US-AUROBINDO-AUR-APL-2022-041587

PATIENT
  Age: 59 Year
  Sex: Female

DRUGS (7)
  1. LEVOFLOXACIN [Suspect]
     Active Substance: LEVOFLOXACIN
     Indication: Endophthalmitis
     Route: 048
  2. METHYLPREDNISOLONE [Suspect]
     Active Substance: METHYLPREDNISOLONE
     Indication: Endophthalmitis
     Route: 048
  3. VANCOMYCIN [Suspect]
     Active Substance: VANCOMYCIN
     Indication: Endophthalmitis
     Route: 065
  4. ATROPINE [Suspect]
     Active Substance: ATROPINE
     Indication: Endophthalmitis
     Route: 065
  5. CEFTAZIDIME [Suspect]
     Active Substance: CEFTAZIDIME
     Indication: Endophthalmitis
     Route: 065
  6. PREDNISOLONE [Suspect]
     Active Substance: PREDNISOLONE
     Indication: Endophthalmitis
     Route: 061
  7. DIMETHICONE [Suspect]
     Active Substance: DIMETHICONE
     Indication: Product used for unknown indication

REACTIONS (1)
  - Drug ineffective [Unknown]
